FAERS Safety Report 6808965-5 (Version None)
Quarter: 2010Q2

REPORT INFORMATION
  Report Type: 
  Country: None (occurrence: None)
  Receive Date: 20100630
  Receipt Date: 20100310
  Transmission Date: 20101027
  Serious: No
  Sender: FDA-Public Use
  Company Number: US-PFIZER INC-2009244823

PATIENT
  Sex: Male
  Weight: 61.224 kg

DRUGS (4)
  1. XANAX [Suspect]
     Dosage: UNK
  2. ALPRAZOLAM [Suspect]
     Indication: ANXIETY
     Dosage: 0.5 MG, 3X/DAY
     Route: 048
     Dates: start: 20100201, end: 20100301
  3. CELEXA [Concomitant]
     Indication: DEPRESSION
     Dosage: 10 MG, 1X/DAY
     Route: 048
  4. DOXEPIN [Concomitant]
     Dosage: UNK

REACTIONS (2)
  - ABDOMINAL DISCOMFORT [None]
  - DRY MOUTH [None]
